FAERS Safety Report 24359155 (Version 1)
Quarter: 2024Q3

REPORT INFORMATION
  Report Type: Spontaneous
  Country: KR (occurrence: KR)
  Receive Date: 20240924
  Receipt Date: 20240924
  Transmission Date: 20241017
  Serious: Yes (Other)
  Sender: MERCK
  Company Number: KR-009507513-2409KOR007030

PATIENT
  Sex: Male
  Weight: 44 kg

DRUGS (1)
  1. ZERBAXA [Suspect]
     Active Substance: CEFTOLOZANE SULFATE\TAZOBACTAM SODIUM
     Indication: Pneumonia
     Dosage: 2 DOSAGE FORM, Q8H
     Dates: start: 20231010, end: 20231019

REACTIONS (2)
  - Leukopenia [Recovered/Resolved]
  - Thrombocytopenia [Recovered/Resolved]

NARRATIVE: CASE EVENT DATE: 20231012
